FAERS Safety Report 23576953 (Version 2)
Quarter: 2025Q3

REPORT INFORMATION
  Report Type: Report from Study
  Country: US (occurrence: US)
  Receive Date: 20240228
  Receipt Date: 20250926
  Transmission Date: 20251021
  Serious: Yes (Other)
  Sender: PFIZER
  Company Number: US-PFIZER INC-202400050102

PATIENT

DRUGS (1)
  1. KETAMINE HYDROCHLORIDE [Suspect]
     Active Substance: KETAMINE HYDROCHLORIDE
     Indication: Major depression
     Dosage: 0.5 MG/KG, 2X/WEEK (BODY WEIGHT INFUSED OVER 40 MIN AS AUGMENTATION THERAPY)
     Route: 042

REACTIONS (1)
  - Delusion [Unknown]
